FAERS Safety Report 11493620 (Version 1)
Quarter: 2015Q3

REPORT INFORMATION
  Report Type: Spontaneous
  Country: IT (occurrence: IT)
  Receive Date: 20150911
  Receipt Date: 20150911
  Transmission Date: 20151125
  Serious: Yes (Life-Threatening, Hospitalization, Other)
  Sender: FDA-Public Use
  Company Number: IT-ACCORD-033565

PATIENT
  Age: 3 Year
  Sex: Female

DRUGS (9)
  1. IFOSFAMIDE. [Suspect]
     Active Substance: IFOSFAMIDE
     Indication: NEOPLASM
     Dosage: 2 GR/M2, 2 ICE COURSES
  2. DOXORUBICIN [Suspect]
     Active Substance: DOXORUBICIN
     Indication: NEOPLASM
  3. TEMOZOLOMIDE. [Suspect]
     Active Substance: TEMOZOLOMIDE
     Indication: NEOPLASM
     Route: 048
  4. CYCLOPHOSPHAMIDE/CYCLOPHOSPHAMIDE MONOHYDRATE [Suspect]
     Active Substance: CYCLOPHOSPHAMIDE
     Indication: NEOPLASM
     Dosage: 2 CAV
  5. IRINOTECAN [Suspect]
     Active Substance: IRINOTECAN
     Indication: NEOPLASM
     Route: 048
  6. CARBOPLATIN. [Suspect]
     Active Substance: CARBOPLATIN
     Indication: NEOPLASM
     Dosage: 2 ICE COURSES
  7. SORAFENIB/SORAFENIB TOSILATE [Suspect]
     Active Substance: SORAFENIB TOSYLATE
     Indication: NEOPLASM
     Route: 048
  8. VINCRISTINE [Suspect]
     Active Substance: VINCRISTINE
     Indication: NEOPLASM
  9. ETOPOSIDE. [Suspect]
     Active Substance: ETOPOSIDE
     Indication: NEOPLASM
     Dosage: 2 ICE COURSES

REACTIONS (13)
  - Febrile neutropenia [Unknown]
  - Rash [Unknown]
  - Stem cell transplant [None]
  - Recurrent cancer [None]
  - Metastases to peritoneum [None]
  - Malignant ascites [None]
  - Malignant neoplasm progression [None]
  - Neuroectodermal neoplasm [None]
  - Off label use [Unknown]
  - Bone marrow toxicity [Unknown]
  - Diarrhoea [None]
  - Metastases to abdominal cavity [None]
  - Dry skin [Unknown]
